FAERS Safety Report 14816194 (Version 2)
Quarter: 2018Q2

REPORT INFORMATION
  Report Type: Report from Study
  Country: BR (occurrence: BR)
  Receive Date: 20180426
  Receipt Date: 20180522
  Transmission Date: 20180711
  Serious: Yes (Other)
  Sender: FDA-Public Use
  Company Number: PHHY2017BR003373

PATIENT
  Sex: Female
  Weight: 70 kg

DRUGS (7)
  1. CRESTOR [Concomitant]
     Active Substance: ROSUVASTATIN CALCIUM
     Indication: CARDIOVASCULAR DISORDER
     Route: 065
  2. ACLASTA [Suspect]
     Active Substance: ZOLEDRONIC ACID
     Indication: OSTEOPOROSIS
     Dosage: 5 MG (100 ML), Q12MO
     Route: 042
     Dates: start: 2014
  3. ACLASTA [Suspect]
     Active Substance: ZOLEDRONIC ACID
     Route: 042
     Dates: start: 2016
  4. ACLASTA [Suspect]
     Active Substance: ZOLEDRONIC ACID
     Dosage: UNK
     Route: 042
     Dates: start: 201707
  5. CALCIUM [Concomitant]
     Active Substance: CALCIUM
     Indication: CARDIOVASCULAR DISORDER
     Route: 065
  6. VITAMIN D [Concomitant]
     Active Substance: CHOLECALCIFEROL
     Indication: CARDIOVASCULAR DISORDER
     Route: 065
  7. DAFLON [Concomitant]
     Indication: CARDIOVASCULAR DISORDER
     Route: 065

REACTIONS (12)
  - Urinary tract infection [Recovering/Resolving]
  - Throat clearing [Unknown]
  - Food intolerance [Unknown]
  - Osteoporosis [Recovered/Resolved]
  - Malaise [Recovering/Resolving]
  - Arthralgia [Not Recovered/Not Resolved]
  - Pain in extremity [Unknown]
  - Discomfort [Recovering/Resolving]
  - Condition aggravated [Recovered/Resolved]
  - Pneumonia [Recovering/Resolving]
  - Arthropathy [Unknown]
  - Pyrexia [Recovering/Resolving]
